FAERS Safety Report 5158433-4 (Version None)
Quarter: 2006Q4

REPORT INFORMATION
  Report Type: 
  Country: None (occurrence: None)
  Receive Date: 20061128
  Receipt Date: 20060809
  Transmission Date: 20070319
  Serious: Yes (Hospitalization)
  Sender: FDA-Public Use
  Company Number: PHHO2006US13101

PATIENT
  Age: 70 Year
  Sex: Male
  Weight: 105 kg

DRUGS (12)
  1. LASIX [Suspect]
     Dosage: 40 MG, UNK
  2. LASIX [Suspect]
     Dosage: 20 MG, UNK
  3. ZOLEDRONIC ACID VS ALEDRONATE [Suspect]
     Indication: OSTEOPOROSIS
     Dosage: INTRAVENOUS + ORAL
     Dates: start: 20050808
  4. VITAMIN D [Concomitant]
     Indication: OSTEOPOROSIS
  5. CALCIUM [Concomitant]
     Indication: OSTEOPOROSIS
  6. LOPRESSOR [Suspect]
     Dosage: 50 MG, BID
     Dates: start: 20060719, end: 20060814
  7. LOPRESSOR [Suspect]
     Dosage: NO TREATMENT
     Dates: start: 20060815, end: 20060820
  8. LOPRESSOR [Suspect]
     Dosage: 25 MG, TID
     Dates: start: 20060821, end: 20060822
  9. LOPRESSOR [Suspect]
     Dosage: 50 MG, TID
     Dates: start: 20060822, end: 20060822
  10. LOPRESSOR [Suspect]
     Dosage: 50 MG, QD
     Dates: start: 20060823
  11. AMIODARONE HCL [Suspect]
     Dosage: 400 MG, UNK
  12. AMIODARONE HCL [Suspect]
     Dosage: 150 MG, UNK

REACTIONS (14)
  - BRADYCARDIA [None]
  - CEREBROVASCULAR ACCIDENT [None]
  - CONFUSIONAL STATE [None]
  - DIPLOPIA [None]
  - DIZZINESS [None]
  - FALL [None]
  - FLUSHING [None]
  - HEART RATE INCREASED [None]
  - HEMIPARESIS [None]
  - IMPLANTABLE DEFIBRILLATOR INSERTION [None]
  - NAUSEA [None]
  - SENSORY LOSS [None]
  - SYNCOPE [None]
  - VENTRICULAR TACHYCARDIA [None]
